FAERS Safety Report 6460958-6 (Version None)
Quarter: 2009Q4

REPORT INFORMATION
  Report Type: 
  Country: None (occurrence: None)
  Receive Date: 20091123
  Receipt Date: 20091109
  Transmission Date: 20100525
  Serious: Yes (Hospitalization)
  Sender: FDA-Public Use
  Company Number: 2009AC000282

PATIENT
  Age: 77 Year
  Sex: Female

DRUGS (14)
  1. DIGOXIN [Suspect]
     Dosage: 0.125 MG; QD; PO
     Route: 048
     Dates: start: 20080423
  2. LISINOPRIL [Concomitant]
  3. LEVAQUIN [Concomitant]
  4. LORTAB [Concomitant]
  5. ACTOS [Concomitant]
  6. ZESTRIL [Concomitant]
  7. WARFARIN SODIUM [Concomitant]
  8. TOPROL-XL [Concomitant]
  9. DESYREL [Concomitant]
  10. SYNTHROID [Concomitant]
  11. BUSPAR [Concomitant]
  12. DIOVAN [Concomitant]
  13. KLOR-CON [Concomitant]
  14. LASIX [Concomitant]

REACTIONS (12)
  - ABDOMINAL PAIN [None]
  - ASTHENIA [None]
  - BRADYCARDIA [None]
  - DIZZINESS [None]
  - ECONOMIC PROBLEM [None]
  - HEPATIC FUNCTION ABNORMAL [None]
  - HYPONATRAEMIA [None]
  - HYPOVOLAEMIA [None]
  - INJURY [None]
  - PYELONEPHRITIS [None]
  - THERAPEUTIC AGENT TOXICITY [None]
  - URINARY TRACT INFECTION [None]
